FAERS Safety Report 18068119 (Version 6)
Quarter: 2021Q2

REPORT INFORMATION
  Report Type: Spontaneous
  Country: US (occurrence: US)
  Receive Date: 20200724
  Receipt Date: 20210618
  Transmission Date: 20210717
  Serious: Yes (Hospitalization, Other)
  Sender: FDA-Public Use
  Company Number: US-SEATTLE GENETICS-2020SGN02807

PATIENT
  Age: 55 Year
  Sex: Female

DRUGS (2)
  1. TUKYSA [Suspect]
     Active Substance: TUCATINIB
     Indication: BREAST CANCER FEMALE
     Dosage: UNK
     Route: 048
  2. TUKYSA [Suspect]
     Active Substance: TUCATINIB
     Dosage: UNK

REACTIONS (10)
  - Fatigue [Unknown]
  - Disease progression [Unknown]
  - Brain operation [Unknown]
  - Insomnia [Unknown]
  - Balance disorder [Unknown]
  - Acne [Unknown]
  - Brain tumour operation [Unknown]
  - Cerebrovascular accident [Unknown]
  - Mood swings [Unknown]
  - Motor dysfunction [Unknown]

NARRATIVE: CASE EVENT DATE: 20200715
